FAERS Safety Report 4773156-9 (Version None)
Quarter: 2005Q3

REPORT INFORMATION
  Report Type: 
  Country: None (occurrence: None)
  Receive Date: 20050919
  Receipt Date: 20050909
  Transmission Date: 20060218
  Serious: Yes (Other)
  Sender: FDA-Public Use
  Company Number: IE-ABBOTT-05P-229-0310639-00

PATIENT
  Sex: Male

DRUGS (1)
  1. HUMIRA [Suspect]
     Indication: DRUG USE FOR UNKNOWN INDICATION
     Route: 058
     Dates: start: 20050711, end: 20050905

REACTIONS (4)
  - DIZZINESS [None]
  - EPILEPSY [None]
  - HYPOAESTHESIA [None]
  - INFECTION [None]
